FAERS Safety Report 4791275-8 (Version None)
Quarter: 2005Q4

REPORT INFORMATION
  Report Type: 
  Country: None (occurrence: None)
  Receive Date: 20051005
  Receipt Date: 20050920
  Transmission Date: 20060501
  Serious: Yes (Hospitalization)
  Sender: FDA-Public Use
  Company Number: GBR-2005-0001894

PATIENT
  Sex: Female

DRUGS (2)
  1. OXYCONTIN [Suspect]
     Indication: OSTEOPOROTIC FRACTURE
     Dosage: 40 MG, DAILY, ORAL
     Route: 048
     Dates: start: 20050401, end: 20050622
  2. OXYNORM CAPSULES 10 MG (OXYCODONE HYDROCHLORIDE) IR CAPSULE [Suspect]
     Indication: OSTEOPOROTIC FRACTURE
     Dosage: 10 MG, DAILY, ORAL
     Route: 048
     Dates: start: 20050401, end: 20050622

REACTIONS (2)
  - BLADDER DISTENSION [None]
  - CYSTITIS ESCHERICHIA [None]
